FAERS Safety Report 20118814 (Version 2)
Quarter: 2021Q4

REPORT INFORMATION
  Report Type: Other
  Country: US (occurrence: None)
  Receive Date: 20211126
  Receipt Date: 20211227
  Transmission Date: 20220303
  Serious: Yes (Hospitalization, Other)
  Sender: FDA-Public Use
  Company Number: US-ROCHE-2959764

PATIENT
  Age: 52 Year
  Sex: Female
  Weight: 106.69 kg

DRUGS (31)
  1. OCREVUS [Suspect]
     Active Substance: OCRELIZUMAB
     Indication: Relapsing-remitting multiple sclerosis
     Dosage: 12/MAY/2021 AND 16/NOV/2021
     Route: 042
     Dates: start: 202011
  2. OCREVUS [Suspect]
     Active Substance: OCRELIZUMAB
     Dosage: 11/DEC/2020
     Route: 042
  3. CLONAZEPAM [Suspect]
     Active Substance: CLONAZEPAM
     Indication: Insomnia
     Dosage: STARTED 3 TO 4 YEARS AGO PRESCRIPTION NUMBER 892859
     Route: 048
  4. VITAMIN B12 [Concomitant]
     Active Substance: CYANOCOBALAMIN
     Indication: Gastric bypass
     Route: 048
     Dates: start: 2008
  5. VITAMIN B12 [Concomitant]
     Active Substance: CYANOCOBALAMIN
     Indication: Multiple sclerosis
  6. LUTEIN [Concomitant]
     Active Substance: LUTEIN
     Indication: Uveitis
     Route: 048
     Dates: start: 2017
  7. ALBUTEROL [Concomitant]
     Active Substance: ALBUTEROL
     Indication: Asthma
     Dosage: 2 PUFFS EVERY 4 TO 6 HOURS STARTED LONG BEFORE SHE STARTED OCREVUS
     Route: 055
  8. SINGULAIR [Concomitant]
     Active Substance: MONTELUKAST SODIUM
     Indication: Seasonal allergy
     Dosage: STARTED ABOUT 13 YEARS AGO TAKES AT NIGHT
     Route: 048
  9. LEXAPRO [Concomitant]
     Active Substance: ESCITALOPRAM OXALATE
     Indication: Depression
     Dosage: AT BEDTIME
     Route: 048
     Dates: start: 2017
  10. TRAMADOL [Concomitant]
     Active Substance: TRAMADOL
     Indication: Pain
     Dosage: AT BEDTIME
     Route: 048
     Dates: start: 2018
  11. TRAMADOL [Concomitant]
     Active Substance: TRAMADOL
     Indication: Pain
  12. PREDNISONE [Concomitant]
     Active Substance: PREDNISONE
  13. ARMODAFINIL [Concomitant]
     Active Substance: ARMODAFINIL
  14. SCOPOLAMINE [Concomitant]
     Active Substance: SCOPOLAMINE
  15. ALBUTEROL [Concomitant]
     Active Substance: ALBUTEROL
  16. BENADRYL [Concomitant]
     Active Substance: DIPHENHYDRAMINE HYDROCHLORIDE
  17. KLONOPIN [Concomitant]
     Active Substance: CLONAZEPAM
  18. FLEXERIL [Concomitant]
     Active Substance: CYCLOBENZAPRINE HYDROCHLORIDE
  19. DICLOFENAC [Concomitant]
     Active Substance: DICLOFENAC
  20. EPIPEN [Concomitant]
     Active Substance: EPINEPHRINE
  21. BIOTIN [Concomitant]
     Active Substance: BIOTIN
  22. LEXAPRO [Concomitant]
     Active Substance: ESCITALOPRAM OXALATE
  23. MONTELUKAST [Concomitant]
     Active Substance: MONTELUKAST SODIUM
  24. OMEPRAZOLE [Concomitant]
     Active Substance: OMEPRAZOLE
  25. ROBAXIN [Concomitant]
     Active Substance: METHOCARBAMOL
  26. LUTEIN [Concomitant]
     Active Substance: LUTEIN
  27. VITAMIN B1 [Concomitant]
     Active Substance: THIAMINE HYDROCHLORIDE
  28. VITAMIN C [Concomitant]
     Active Substance: ASCORBIC ACID
  29. VITAMIN D3 [Concomitant]
     Active Substance: CHOLECALCIFEROL
  30. ZINC [Concomitant]
     Active Substance: ZINC
  31. COVID-19 VACCINE [Concomitant]

REACTIONS (6)
  - COVID-19 pneumonia [Recovering/Resolving]
  - Respiratory distress [Recovered/Resolved]
  - Hypoxia [Recovered/Resolved]
  - Multiple sclerosis relapse [Recovered/Resolved]
  - Sinusitis [Unknown]
  - Headache [Recovered/Resolved]

NARRATIVE: CASE EVENT DATE: 20210701
